FAERS Safety Report 5107818-0 (Version None)
Quarter: 2006Q3

REPORT INFORMATION
  Report Type: 
  Country: None (occurrence: None)
  Receive Date: 20060919
  Receipt Date: 20060710
  Transmission Date: 20061208
  Serious: Yes (Hospitalization)
  Sender: FDA-Public Use
  Company Number: PHHO2006JP11195

PATIENT
  Age: 55 Year
  Sex: Female
  Weight: 90 kg

DRUGS (8)
  1. DIOVAN [Suspect]
     Indication: HYPERTENSION
     Dosage: 40 MG, QD
     Route: 048
     Dates: start: 20030407, end: 20050830
  2. ASPIRIN [Concomitant]
     Indication: THROMBOSIS PROPHYLAXIS
  3. AMARYL [Concomitant]
     Indication: DIABETES MELLITUS
  4. LASIX [Concomitant]
     Indication: CARDIAC FAILURE
  5. DIGOXIN [Concomitant]
     Indication: CARDIAC FAILURE
     Dates: start: 20030407
  6. BASEN [Concomitant]
     Indication: DIABETES MELLITUS
  7. LIPITOR [Concomitant]
  8. ACARDI [Concomitant]

REACTIONS (1)
  - BIPOLAR I DISORDER [None]
